FAERS Safety Report 25948936 (Version 3)
Quarter: 2025Q4

REPORT INFORMATION
  Report Type: Report from Study
  Country: US (occurrence: US)
  Receive Date: 20251022
  Receipt Date: 20251128
  Transmission Date: 20260118
  Serious: Yes (Other)
  Sender: DR REDDYS
  Company Number: US-DRL-USA-USA/2025/10/015848

PATIENT
  Age: 22 Year
  Sex: Female

DRUGS (2)
  1. ACCUTANE [Suspect]
     Active Substance: ISOTRETINOIN
     Indication: Acne
     Route: 065
     Dates: start: 20211101, end: 20220522
  2. ZOLOFT [Concomitant]
     Active Substance: SERTRALINE HYDROCHLORIDE
     Indication: Anxiety
     Dosage: SHE DOESN^T KNOW DOSE AND STRENGTH OF IT AS IT WAS VERY LOW DOSE

REACTIONS (8)
  - Deafness [Not Recovered/Not Resolved]
  - Dry eye [Not Recovered/Not Resolved]
  - Pruritus [Not Recovered/Not Resolved]
  - Skin exfoliation [Not Recovered/Not Resolved]
  - Dehydration [Not Recovered/Not Resolved]
  - Rosacea [Not Recovered/Not Resolved]
  - Hyperhidrosis [Not Recovered/Not Resolved]
  - Meibomian gland dysfunction [Not Recovered/Not Resolved]

NARRATIVE: CASE EVENT DATE: 20220407
